FAERS Safety Report 23294020 (Version 6)
Quarter: 2025Q3

REPORT INFORMATION
  Report Type: Spontaneous
  Country: JP (occurrence: JP)
  Receive Date: 20231213
  Receipt Date: 20250821
  Transmission Date: 20251021
  Serious: Yes (Disabling, Other)
  Sender: ALEXION PHARMACEUTICALS
  Company Number: 2023A257206

PATIENT
  Age: 68 Year
  Sex: Female
  Weight: 57 kg

DRUGS (12)
  1. IMFINZI [Suspect]
     Active Substance: DURVALUMAB
     Indication: Non-small cell lung cancer
     Dosage: 1500 MILLIGRAM, Q3W
     Dates: start: 20231012
  2. IMFINZI [Suspect]
     Active Substance: DURVALUMAB
     Dosage: 1500 MILLIGRAM, Q3W
     Dates: end: 20240424
  3. IMJUDO [Suspect]
     Active Substance: TREMELIMUMAB\TREMELIMUMAB-ACTL
     Indication: Non-small cell lung cancer
     Dosage: 75 MILLIGRAM, Q3W
     Dates: start: 20231012, end: 20231012
  4. PEMETREXED [Suspect]
     Active Substance: PEMETREXED
     Route: 065
     Dates: start: 20231012, end: 20231012
  5. PEMETREXED [Suspect]
     Active Substance: PEMETREXED
     Route: 065
     Dates: start: 20231115, end: 20240110
  6. PEMETREXED [Suspect]
     Active Substance: PEMETREXED
     Route: 065
     Dates: start: 20240131, end: 20240424
  7. CARBOPLATIN [Concomitant]
     Active Substance: CARBOPLATIN
     Indication: Non-small cell lung cancer
     Route: 065
     Dates: start: 20231012, end: 20231012
  8. CARBOPLATIN [Concomitant]
     Active Substance: CARBOPLATIN
     Route: 065
     Dates: start: 20231115, end: 20240110
  9. ARIMIDEX [Concomitant]
     Active Substance: ANASTROZOLE
     Indication: Non-small cell lung cancer
     Dosage: 1 MILLIGRAM, QD
  10. OLODATEROL HYDROCHLORIDE\TIOTROPIUM BROMIDE MONOHYDRATE [Concomitant]
     Active Substance: OLODATEROL HYDROCHLORIDE\TIOTROPIUM BROMIDE MONOHYDRATE
     Indication: Non-small cell lung cancer
  11. HYDROXOCOBALAMIN [Concomitant]
     Active Substance: HYDROXOCOBALAMIN
     Indication: Non-small cell lung cancer
     Route: 065
  12. METHYLCOBALAMIN [Concomitant]
     Active Substance: METHYLCOBALAMIN
     Indication: Non-small cell lung cancer
     Route: 065
     Dates: start: 20231213, end: 20240327

REACTIONS (8)
  - Rash maculo-papular [Recovering/Resolving]
  - Erythema multiforme [Recovering/Resolving]
  - Skin disorder [Recovering/Resolving]
  - Dermatitis [Recovering/Resolving]
  - Pigmentation disorder [Not Recovered/Not Resolved]
  - Immune-mediated lung disease [Recovering/Resolving]
  - Pruritus [Recovering/Resolving]
  - Immune-mediated dermatitis [Recovering/Resolving]

NARRATIVE: CASE EVENT DATE: 20231016
